APPROVED DRUG PRODUCT: CEFTRIAXONE
Active Ingredient: CEFTRIAXONE SODIUM
Strength: EQ 500MG BASE/VIAL
Dosage Form/Route: INJECTABLE;INTRAMUSCULAR, INTRAVENOUS
Application: A065305 | Product #002 | TE Code: AP
Applicant: EPIC PHARMA LLC
Approved: Jan 11, 2008 | RLD: No | RS: No | Type: RX